FAERS Safety Report 10282091 (Version 2)
Quarter: 2014Q3

REPORT INFORMATION
  Report Type: Spontaneous
  Country: JP (occurrence: JP)
  Receive Date: 20140707
  Receipt Date: 20140721
  Transmission Date: 20150326
  Serious: Yes (Hospitalization)
  Sender: FDA-Public Use
  Company Number: JP-GLAXOSMITHKLINE-B1011012A

PATIENT
  Age: 50 Year
  Sex: Female

DRUGS (4)
  1. LAMICTAL [Suspect]
     Active Substance: LAMOTRIGINE
     Indication: BIPOLAR DISORDER
     Route: 048
     Dates: start: 20130408, end: 20131118
  2. FOSFOMYCIN CALCIUM [Suspect]
     Active Substance: FOSFOMYCIN CALCIUM
     Indication: PRODUCT USED FOR UNKNOWN INDICATION
     Route: 065
  3. CLONAZEPAM. [Suspect]
     Active Substance: CLONAZEPAM
     Indication: PRODUCT USED FOR UNKNOWN INDICATION
     Dosage: 1MG TWICE PER DAY
     Route: 048
  4. CHINESE MEDICINE [Concomitant]
     Active Substance: UNSPECIFIED INGREDIENT
     Indication: PRODUCT USED FOR UNKNOWN INDICATION
     Dosage: 2.5MG THREE TIMES PER DAY
     Route: 048

REACTIONS (15)
  - Splenomegaly [Unknown]
  - Malaise [Unknown]
  - Inflammation [Unknown]
  - Lymphadenopathy [Unknown]
  - Tracheal oedema [Unknown]
  - Tachycardia [Unknown]
  - Wheezing [Recovered/Resolved]
  - Oesophageal oedema [Unknown]
  - Pyrexia [Unknown]
  - Decreased appetite [Unknown]
  - Liver disorder [Unknown]
  - Drug reaction with eosinophilia and systemic symptoms [Recovering/Resolving]
  - Rash [Recovering/Resolving]
  - Face oedema [Unknown]
  - Erythema multiforme [Unknown]

NARRATIVE: CASE EVENT DATE: 20131108
